FAERS Safety Report 8198658 (Version 2)
Quarter: 2017Q3

REPORT INFORMATION
  Report Type: Spontaneous
  Country: PL (occurrence: PL)
  Receive Date: 20111025
  Receipt Date: 20170822
  Transmission Date: 20171128
  Serious: Yes (Other)
  Sender: FDA-Public Use
  Company Number: PL-CELGENEUS-129-20785-11101187

PATIENT

DRUGS (1)
  1. THALIDOMIDE [Suspect]
     Active Substance: THALIDOMIDE
     Indication: PLASMA CELL MYELOMA
     Route: 048

REACTIONS (13)
  - Plasma cell leukaemia [Unknown]
  - Skin cancer [Unknown]
  - Ovarian cancer [Unknown]
  - Acute myeloid leukaemia [Unknown]
  - Neoplasm malignant [Unknown]
  - B-cell lymphoma [Unknown]
  - Bladder adenocarcinoma stage unspecified [Unknown]
  - Plasmacytoma [Unknown]
  - Malignant melanoma [Unknown]
  - Adenocarcinoma of colon [Unknown]
  - Non-small cell lung cancer [Unknown]
  - Myelodysplastic syndrome [Unknown]
  - Prostate cancer [Unknown]
